FAERS Safety Report 23512896 (Version 2)
Quarter: 2024Q1

REPORT INFORMATION
  Report Type: Spontaneous
  Country: CR (occurrence: CR)
  Receive Date: 20240212
  Receipt Date: 20240306
  Transmission Date: 20240410
  Serious: Yes (Other)
  Sender: FDA-Public Use
  Company Number: CR-BAYER-2024A022009

PATIENT
  Age: 53 Year
  Sex: Female

DRUGS (1)
  1. MIRENA [Suspect]
     Active Substance: LEVONORGESTREL
     Indication: Intermenstrual bleeding
     Dosage: 20?G/DAY
     Route: 015
     Dates: start: 202310, end: 202401

REACTIONS (2)
  - Breast cancer female [Not Recovered/Not Resolved]
  - Off label use [None]

NARRATIVE: CASE EVENT DATE: 20240101
